FAERS Safety Report 8135369-8 (Version None)
Quarter: 2012Q1

REPORT INFORMATION
  Report Type: 
  Country: None (occurrence: None)
  Receive Date: 20120214
  Receipt Date: 20120206
  Transmission Date: 20120608
  Serious: Yes (Other)
  Sender: FDA-Public Use
  Company Number: PHHY2012DE009790

PATIENT
  Sex: Female

DRUGS (4)
  1. POLYSPECTRAN G [Concomitant]
     Dosage: UNK UKN, UNK
     Dates: start: 20110301, end: 20110401
  2. YXIN [Concomitant]
     Dosage: UNK UKN, UNK
  3. ECULAN [Concomitant]
     Dosage: UNK UKN, UNK
  4. GENTEAL [Suspect]
     Indication: DRY EYE
     Dosage: UNK UKN, UNK

REACTIONS (1)
  - STAPHYLOCOCCAL INFECTION [None]
